FAERS Safety Report 17314514 (Version 1)
Quarter: 2020Q1

REPORT INFORMATION
  Report Type: Spontaneous
  Country: US (occurrence: US)
  Receive Date: 20200124
  Receipt Date: 20200124
  Transmission Date: 20200409
  Serious: No
  Sender: FDA-Public Use
  Company Number: US-PCCINC-2019-PEL-000049

PATIENT

DRUGS (1)
  1. GABLOFEN [Suspect]
     Active Substance: BACLOFEN
     Indication: MUSCLE SPASTICITY
     Dosage: 199.9 MICROGRAM, QD
     Route: 037

REACTIONS (4)
  - Gait disturbance [Unknown]
  - Muscle spasms [Unknown]
  - Withdrawal syndrome [Recovered/Resolved]
  - Hypertonia [Unknown]
